FAERS Safety Report 24391868 (Version 1)
Quarter: 2024Q4

REPORT INFORMATION
  Report Type: Spontaneous
  Country: US (occurrence: None)
  Receive Date: 20241002
  Receipt Date: 20241002
  Transmission Date: 20250115
  Serious: No
  Sender: Public
  Company Number: None

PATIENT
  Age: 74 Year
  Sex: Female
  Weight: 68 kg

DRUGS (2)
  1. OJJAARA [Suspect]
     Active Substance: MOMELOTINIB DIHYDROCHLORIDE MONOHYDRATE
     Indication: Myeloproliferative neoplasm
     Dosage: FREQUENCY : DAILY;?
     Route: 048
     Dates: start: 20240806, end: 20240904
  2. anagralide [Concomitant]
     Dates: start: 20201001, end: 20241002

REACTIONS (4)
  - Fatigue [None]
  - Asthenia [None]
  - Neuropathy peripheral [None]
  - Therapy cessation [None]

NARRATIVE: CASE EVENT DATE: 20240904
